FAERS Safety Report 19928664 (Version 1)
Quarter: 2021Q4

REPORT INFORMATION
  Report Type: Spontaneous
  Country: US (occurrence: US)
  Receive Date: 20211007
  Receipt Date: 20211007
  Transmission Date: 20220303
  Serious: No
  Sender: FDA-Public Use
  Company Number: US-AJANTA PHARMA USA INC.-2120289

PATIENT
  Age: 81 Year
  Sex: Male
  Weight: 81.82 kg

DRUGS (13)
  1. DULOXETINE [Suspect]
     Active Substance: DULOXETINE
     Indication: Arthritis
     Route: 048
     Dates: start: 202108, end: 2021
  2. AMIODARONE HYDROCHLORIDE [Concomitant]
     Active Substance: AMIODARONE HYDROCHLORIDE
  3. CYANOCOBALAMIN [Concomitant]
     Active Substance: CYANOCOBALAMIN
  4. ASPIRIN [Concomitant]
     Active Substance: ASPIRIN
  5. ROSUVASTATIN [Concomitant]
     Active Substance: ROSUVASTATIN
  6. COENZYME Q10 [Concomitant]
     Active Substance: DIETARY SUPPLEMENT\UBIDECARENONE
  7. JANTOVEN [Concomitant]
     Active Substance: WARFARIN SODIUM
  8. LEVOTHYROXINE [Concomitant]
     Active Substance: LEVOTHYROXINE
  9. TYLENOL EXTRA STRENGTH [Concomitant]
     Active Substance: ACETAMINOPHEN
  10. TORSEMIDE [Concomitant]
     Active Substance: TORSEMIDE
  11. CARVEDILOL [Concomitant]
     Active Substance: CARVEDILOL
  12. ISOSORBIDE [Concomitant]
     Active Substance: ISOSORBIDE
  13. LOSARTAN [Concomitant]
     Active Substance: LOSARTAN

REACTIONS (2)
  - Abdominal pain [Recovered/Resolved]
  - Diarrhoea [Recovered/Resolved]

NARRATIVE: CASE EVENT DATE: 20210801
